FAERS Safety Report 24618589 (Version 1)
Quarter: 2024Q4

REPORT INFORMATION
  Report Type: Spontaneous
  Country: CN (occurrence: CN)
  Receive Date: 20241114
  Receipt Date: 20241114
  Transmission Date: 20250114
  Serious: Yes (Hospitalization, Other)
  Sender: PFIZER
  Company Number: CN-PFIZER INC-PV202400145882

PATIENT
  Age: 61 Year
  Sex: Male
  Weight: 45 kg

DRUGS (13)
  1. IRINOTECAN HYDROCHLORIDE [Suspect]
     Active Substance: IRINOTECAN HYDROCHLORIDE
     Indication: Chemotherapy
     Dosage: 265 MG, 1X/DAY
     Route: 041
     Dates: start: 20241023, end: 20241023
  2. IRINOTECAN HYDROCHLORIDE [Suspect]
     Active Substance: IRINOTECAN HYDROCHLORIDE
     Indication: Rectal cancer recurrent
  3. LEUCOVORIN CALCIUM [Suspect]
     Active Substance: LEUCOVORIN CALCIUM
     Indication: Chemotherapy
     Dosage: 0.58 G, 1X/DAY
     Route: 041
     Dates: start: 20241023, end: 20241023
  4. LEUCOVORIN CALCIUM [Suspect]
     Active Substance: LEUCOVORIN CALCIUM
     Indication: Rectal cancer recurrent
  5. FLUOROURACIL [Suspect]
     Active Substance: FLUOROURACIL
     Indication: Chemotherapy
     Dosage: 0.58 G, 1X/DAY
     Route: 040
     Dates: start: 20241023, end: 20241023
  6. FLUOROURACIL [Suspect]
     Active Substance: FLUOROURACIL
     Indication: Rectal cancer recurrent
     Dosage: 3.5 G, 1X/DAY
     Route: 042
     Dates: start: 20241023, end: 20241023
  7. CETUXIMAB [Suspect]
     Active Substance: CETUXIMAB
     Indication: Targeted cancer therapy
     Dosage: 700 MG, 1X/DAY
     Route: 041
     Dates: start: 20241023, end: 20241023
  8. CETUXIMAB [Suspect]
     Active Substance: CETUXIMAB
     Indication: Rectal cancer recurrent
  9. SODIUM CHLORIDE [Concomitant]
     Active Substance: SODIUM CHLORIDE
     Indication: Vehicle solution use
     Dosage: 5% SODIUM CHLORIDE INJECTION 250ML (FOR IRINOTECAN)
     Route: 041
     Dates: start: 20241023, end: 20241023
  10. SODIUM CHLORIDE [Concomitant]
     Active Substance: SODIUM CHLORIDE
     Dosage: 5% SODIUM CHLORIDE INJECTION 250ML (FOR CALCIUM FOLINATE)
     Route: 041
     Dates: start: 20241023, end: 20241023
  11. SODIUM CHLORIDE [Concomitant]
     Active Substance: SODIUM CHLORIDE
     Dosage: 5% SODIUM CHLORIDE INJECTION 50ML (FOR FLUOROURACIL)
     Route: 040
     Dates: start: 20241023, end: 20241023
  12. SODIUM CHLORIDE [Concomitant]
     Active Substance: SODIUM CHLORIDE
     Dosage: 5% SODIUM CHLORIDE INJECTION 240ML (FOR FLUOROURACIL)
     Route: 042
     Dates: start: 20241023, end: 20241023
  13. SODIUM CHLORIDE [Concomitant]
     Active Substance: SODIUM CHLORIDE
     Dosage: 5% SODIUM CHLORIDE INJECTION 0.1ML (FOR CETUXIMAB)
     Route: 041
     Dates: start: 20241023, end: 20241023

REACTIONS (2)
  - Rash maculo-papular [Recovering/Resolving]
  - Drug eruption [Recovering/Resolving]

NARRATIVE: CASE EVENT DATE: 20241105
